FAERS Safety Report 16282354 (Version 1)
Quarter: 2019Q2

REPORT INFORMATION
  Report Type: Report from Study
  Country: MX (occurrence: MX)
  Receive Date: 20190507
  Receipt Date: 20190507
  Transmission Date: 20190711
  Serious: Yes (Other)
  Sender: FDA-Public Use
  Company Number: PHHY2019MX103694

PATIENT
  Sex: Female
  Weight: 68 kg

DRUGS (1)
  1. EXFORGE HCT [Suspect]
     Active Substance: AMLODIPINE BESYLATE\HYDROCHLOROTHIAZIDE\VALSARTAN
     Indication: HYPERTENSION
     Dosage: 1 DF (5 MG), QD
     Route: 048
     Dates: start: 201810

REACTIONS (4)
  - Muscular weakness [Unknown]
  - Malaise [Unknown]
  - Gait disturbance [Unknown]
  - Diabetes mellitus [Unknown]
